FAERS Safety Report 7866772-9 (Version None)
Quarter: 2011Q4

REPORT INFORMATION
  Report Type: 
  Country: None (occurrence: None)
  Receive Date: 20111028
  Receipt Date: 20110816
  Transmission Date: 20120403
  Serious: No
  Sender: FDA-Public Use
  Company Number: US-GLAXOSMITHKLINE-A0941228A

PATIENT
  Age: 82 Year
  Sex: Female

DRUGS (7)
  1. COUMADIN [Concomitant]
  2. CINACALCET HYDROCHLORIDE [Concomitant]
  3. ADVAIR DISKUS 100/50 [Suspect]
     Indication: WHEEZING
     Route: 055
     Dates: start: 20110808
  4. RENVELA [Concomitant]
  5. NEPHRO-VITE [Concomitant]
  6. SULFAMETHOXAZOLE AND TRIMETHOPRIM [Concomitant]
  7. LANTUS [Concomitant]

REACTIONS (1)
  - WHEEZING [None]
